FAERS Safety Report 13707577 (Version 5)
Quarter: 2018Q4

REPORT INFORMATION
  Report Type: Report from Study
  Country: None (occurrence: GB)
  Receive Date: 20170630
  Receipt Date: 20181116
  Transmission Date: 20190204
  Serious: Yes (Death, Other)
  Sender: FDA-Public Use
  Company Number: GB-ABBVIE-17P-167-2026115-00

PATIENT
  Sex: Female

DRUGS (2)
  1. DUODOPA [Suspect]
     Active Substance: CARBIDOPA\LEVODOPA
     Dosage: CR 1.0MLS/HOUR
     Route: 050
  2. DUODOPA [Suspect]
     Active Substance: CARBIDOPA\LEVODOPA
     Indication: PRODUCT USED FOR UNKNOWN INDICATION
     Dosage: 100 ML CASSETTE DAILY CR 2.9MLS/HOUR
     Route: 050
     Dates: end: 2018

REACTIONS (12)
  - Death [Fatal]
  - Breast cancer [Unknown]
  - Stoma site discharge [Unknown]
  - Abdominal pain [Unknown]
  - Asthenia [Unknown]
  - Abdominal infection [Unknown]
  - Dyskinesia [Unknown]
  - Feeling of body temperature change [Unknown]
  - Appetite disorder [Unknown]
  - Pain [Unknown]
  - Stoma site discomfort [Unknown]
  - Metastasis [Unknown]

NARRATIVE: CASE EVENT DATE: 2018
